FAERS Safety Report 5741017-4 (Version None)
Quarter: 2008Q2

REPORT INFORMATION
  Report Type: 
  Country: None (occurrence: None)
  Receive Date: 20080516
  Receipt Date: 20080509
  Transmission Date: 20081010
  Serious: Yes (Other)
  Sender: FDA-Public Use
  Company Number: PHEH2006US11216

PATIENT
  Sex: Female

DRUGS (2)
  1. AREDIA [Suspect]
  2. ZOMETA [Suspect]

REACTIONS (24)
  - ALVEOLAR OSTEITIS [None]
  - ANXIETY [None]
  - ARTHRITIS [None]
  - ASTHMA [None]
  - BONE LESION [None]
  - BRUXISM [None]
  - DECREASED INTEREST [None]
  - DENTAL TREATMENT [None]
  - FALL [None]
  - GENERAL PHYSICAL HEALTH DETERIORATION [None]
  - GINGIVAL ERYTHEMA [None]
  - GINGIVAL INFECTION [None]
  - GINGIVAL OEDEMA [None]
  - GINGIVAL PAIN [None]
  - GINGIVAL SWELLING [None]
  - ORAL SURGERY [None]
  - OSTEONECROSIS [None]
  - PAIN [None]
  - RADIUS FRACTURE [None]
  - SEASONAL ALLERGY [None]
  - SENSITIVITY OF TEETH [None]
  - TOOTH EXTRACTION [None]
  - TOOTH INJURY [None]
  - X-RAY ABNORMAL [None]
